FAERS Safety Report 9735286 (Version 1)
Quarter: 2013Q4

REPORT INFORMATION
  Report Type: Spontaneous
  Country: FR (occurrence: FR)
  Receive Date: 20131206
  Receipt Date: 20131206
  Transmission Date: 20140711
  Serious: Yes (Hospitalization, Other)
  Sender: FDA-Public Use
  Company Number: FR-PFIZER INC-2013345299

PATIENT
  Age: 4 Year
  Sex: Female

DRUGS (3)
  1. ADVIL ENFANTS ET NOURRISSONS [Suspect]
     Dosage: 1 DF IN THE EVENING, 1 DF IN THE MORNING
     Route: 048
     Dates: start: 20131031, end: 20131101
  2. DOLIPRANE [Concomitant]
     Dosage: 1 DF, AS NEEDED
     Dates: start: 20131102, end: 20131103
  3. OTIPAX [Concomitant]
     Dosage: UNK
     Dates: start: 20131102

REACTIONS (2)
  - Acute generalised exanthematous pustulosis [Recovered/Resolved]
  - Tonsillitis [Unknown]
